FAERS Safety Report 9656814 (Version 2)
Quarter: 2013Q4

REPORT INFORMATION
  Report Type: Spontaneous
  Country: GB (occurrence: None)
  Receive Date: 20131028
  Receipt Date: 20131101
  Transmission Date: 20140711
  Serious: Yes (Hospitalization)
  Sender: FDA-Public Use
  Company Number: AUR-APL-2013-08797

PATIENT
  Age: 82 Year
  Sex: Male
  Weight: 67 kg

DRUGS (18)
  1. RAMIPRIL [Suspect]
     Indication: CARDIAC FAILURE CONGESTIVE
     Route: 048
     Dates: end: 20130927
  2. RAMIPRIL [Suspect]
     Indication: HYPERTENSION
     Route: 048
     Dates: end: 20130927
  3. ACIDEX (RANITIDINE HYDROCHLORIDE) [Concomitant]
  4. AMOXICILLIN (AMOXICILLIN) [Concomitant]
  5. BISOPROLOL (BISOPROLOL) [Concomitant]
  6. BUMETANIDE (BUMETANIDE) [Concomitant]
  7. CLENIL MODULITE (BECLOMETASONE DIPROPIONATE) [Concomitant]
  8. CODEINE PHOSPHATE (CODEINE PHOSPHATE) [Concomitant]
  9. DONEPEZIL (DONEPEZIL) [Concomitant]
  10. FERROUS FUMARATE (FERROUS FUMARATE) [Concomitant]
  11. FLUOXETINE (FLUOXETINE) [Concomitant]
  12. LANSOPRAZOLE (LANSOPRAZOLE) [Concomitant]
  13. PARACETAMOL (PARACETAMOL) [Concomitant]
  14. RAMIPRIL (RAMIPRIL) [Concomitant]
  15. SIMVASTATIN (SIMVASTATIN) [Concomitant]
  16. SPIRONOLACTONE (SPIRONOLACTONE) [Concomitant]
  17. WARFARIN (WARFARIN) [Concomitant]
  18. SALBUTAMOL [Concomitant]

REACTIONS (3)
  - Renal injury [None]
  - Dehydration [None]
  - Renal failure acute [None]
